FAERS Safety Report 9883597 (Version 1)
Quarter: 2014Q1

REPORT INFORMATION
  Report Type: Report from Study
  Country: DE (occurrence: DE)
  Receive Date: 20140210
  Receipt Date: 20140210
  Transmission Date: 20141002
  Serious: Yes (Hospitalization)
  Sender: FDA-Public Use
  Company Number: DE-BRISTOL-MYERS SQUIBB COMPANY-20130803

PATIENT
  Age: 69 Year
  Sex: Female

DRUGS (3)
  1. ABATACEPT [Suspect]
     Indication: RHEUMATIC DISORDER
     Dosage: JAN13-JUN13
     Dates: start: 201301, end: 201306
  2. METHOTREXATE [Suspect]
     Indication: RHEUMATIC DISORDER
     Dates: start: 200808
  3. ADALIMUMAB [Suspect]
     Indication: RHEUMATIC DISORDER
     Dates: start: 201001

REACTIONS (1)
  - Foot operation [Unknown]
